FAERS Safety Report 4676981-8 (Version None)
Quarter: 2005Q2

REPORT INFORMATION
  Report Type: 
  Country: None (occurrence: None)
  Receive Date: 20050526
  Receipt Date: 20040105
  Transmission Date: 20051028
  Serious: Yes (Life-Threatening, Hospitalization)
  Sender: FDA-Public Use
  Company Number: 189770

PATIENT
  Age: 39 Year
  Sex: Female
  Weight: 47 kg

DRUGS (3)
  1. AVONEX [Suspect]
     Indication: MULTIPLE SCLEROSIS
     Dosage: 30 UG; QW; IM
     Route: 030
     Dates: start: 19990101, end: 20031001
  2. SOLU-MEDROL [Concomitant]
  3. COPAXONE [Concomitant]

REACTIONS (7)
  - ADRENAL INSUFFICIENCY [None]
  - ASTHENIA [None]
  - BLOOD PRESSURE DECREASED [None]
  - GENERAL PHYSICAL HEALTH DETERIORATION [None]
  - MULTIPLE SCLEROSIS [None]
  - POLYDIPSIA [None]
  - POLYURIA [None]
